FAERS Safety Report 6102338-9 (Version None)
Quarter: 2009Q1

REPORT INFORMATION
  Report Type: 
  Country: None (occurrence: None)
  Receive Date: 20090304
  Receipt Date: 20090224
  Transmission Date: 20090719
  Serious: Yes (Other)
  Sender: FDA-Public Use
  Company Number: US-BAYER-200911999NA

PATIENT
  Age: 58 Year
  Sex: Female

DRUGS (5)
  1. ULTRAVIST 370 [Suspect]
     Indication: COMPUTERISED TOMOGRAM THORAX
     Dosage: TOTAL DAILY DOSE: 80 ML  UNIT DOSE: 500 ML
     Route: 042
     Dates: start: 20090128, end: 20090128
  2. XANAX [Concomitant]
  3. EFFEXOR [Concomitant]
  4. TRAZODONE HCL [Concomitant]
  5. VITAMINS [Concomitant]

REACTIONS (5)
  - ERYTHEMA [None]
  - HYPOTENSION [None]
  - NAUSEA [None]
  - PRURITUS [None]
  - SWELLING FACE [None]
